FAERS Safety Report 19325517 (Version 2)
Quarter: 2025Q4

REPORT INFORMATION
  Report Type: Spontaneous
  Country: US (occurrence: US)
  Receive Date: 20210528
  Receipt Date: 20251118
  Transmission Date: 20260118
  Serious: Yes (Other)
  Sender: PURDUE
  Company Number: US-PURDUE-USA-2020-0232400

PATIENT
  Sex: Male
  Weight: 88.45 kg

DRUGS (16)
  1. OXYCONTIN [Suspect]
     Active Substance: OXYCODONE HYDROCHLORIDE
     Indication: Product used for unknown indication
     Dosage: UNK
     Route: 048
  2. OXYCONTIN [Suspect]
     Active Substance: OXYCODONE HYDROCHLORIDE
     Dosage: UNK
     Route: 048
     Dates: start: 2013, end: 2017
  3. OXYCODONE HYDROCHLORIDE [Suspect]
     Active Substance: OXYCODONE HYDROCHLORIDE
     Indication: Neck injury
     Dosage: UNK
     Route: 048
  4. OXYCODONE HYDROCHLORIDE [Suspect]
     Active Substance: OXYCODONE HYDROCHLORIDE
     Indication: Back pain
     Dosage: 15 MILLIGRAM
     Route: 048
     Dates: start: 2013
  5. OXYCODONE HYDROCHLORIDE [Suspect]
     Active Substance: OXYCODONE HYDROCHLORIDE
     Indication: Musculoskeletal injury
     Dosage: 30 MILLIGRAM
     Route: 048
     Dates: start: 2013
  6. OXYCODONE HYDROCHLORIDE [Suspect]
     Active Substance: OXYCODONE HYDROCHLORIDE
     Indication: Nerve compression
  7. ACETAMINOPHEN\OXYCODONE HYDROCHLORIDE [Suspect]
     Active Substance: ACETAMINOPHEN\OXYCODONE HYDROCHLORIDE
     Indication: Product used for unknown indication
     Dosage: FOR FOUR YEARS
     Route: 048
     Dates: start: 2013, end: 2017
  8. TRAMADOL [Suspect]
     Active Substance: TRAMADOL
     Indication: Product used for unknown indication
     Dosage: UNK
     Route: 048
  9. HEROIN [Suspect]
     Active Substance: DIAMORPHINE
     Indication: Product used for unknown indication
     Dosage: UNK
     Route: 065
  10. METHADONE [Suspect]
     Active Substance: METHADONE HYDROCHLORIDE
     Indication: Product used for unknown indication
     Dosage: UNK
     Route: 065
  11. ALCOHOL [Suspect]
     Active Substance: ALCOHOL
     Indication: Product used for unknown indication
     Dosage: UNK
     Route: 065
  12. SOMA [Concomitant]
     Active Substance: CARISOPRODOL
     Indication: Sleep disorder
     Dosage: UNK
     Route: 065
  13. XANAX [Concomitant]
     Active Substance: ALPRAZOLAM
     Indication: Anxiety
     Dosage: 5 MILLIGRAM
     Route: 065
  14. XANAX [Concomitant]
     Active Substance: ALPRAZOLAM
     Indication: Affective disorder
  15. METHADONE [Concomitant]
     Active Substance: METHADONE HYDROCHLORIDE
     Indication: Withdrawal syndrome
     Dosage: 40 MILLIGRAM
     Route: 065
  16. METHADONE [Concomitant]
     Active Substance: METHADONE HYDROCHLORIDE
     Dosage: 80 MILLIGRAM
     Route: 065

REACTIONS (8)
  - Drug abuse [Unknown]
  - Overdose [Unknown]
  - Drug dependence [Unknown]
  - Emotional distress [Unknown]
  - Pain [Unknown]
  - Injury [Unknown]
  - Adverse event [Unknown]
  - Drug withdrawal syndrome [Unknown]

NARRATIVE: CASE EVENT DATE: 20130101
